FAERS Safety Report 11745186 (Version 1)
Quarter: 2015Q4

REPORT INFORMATION
  Report Type: Spontaneous
  Country: CA (occurrence: CA)
  Receive Date: 20151117
  Receipt Date: 20151117
  Transmission Date: 20160304
  Serious: Yes (Hospitalization)
  Sender: FDA-Public Use
  Company Number: CA-ROCHE-1661132

PATIENT
  Age: 12 Year
  Sex: Female

DRUGS (4)
  1. SINGULAIR [Concomitant]
     Active Substance: MONTELUKAST SODIUM
  2. XOLAIR [Suspect]
     Active Substance: OMALIZUMAB
     Route: 058
     Dates: start: 20151021
  3. SYMBICORT [Concomitant]
     Active Substance: BUDESONIDE\FORMOTEROL FUMARATE DIHYDRATE
  4. XOLAIR [Suspect]
     Active Substance: OMALIZUMAB
     Indication: HYPERSENSITIVITY
     Route: 058
     Dates: start: 20150811

REACTIONS (14)
  - Fatigue [Unknown]
  - Hypersensitivity [Unknown]
  - Asthenia [Unknown]
  - Dyspnoea [Recovered/Resolved]
  - Injection site pain [Unknown]
  - Hypersomnia [Unknown]
  - Erythema [Unknown]
  - Myalgia [Unknown]
  - Arthralgia [Unknown]
  - Malaise [Unknown]
  - Dizziness [Unknown]
  - Dehydration [Unknown]
  - Pyrexia [Unknown]
  - Hydronephrosis [Unknown]

NARRATIVE: CASE EVENT DATE: 20150825
